FAERS Safety Report 4846800-5 (Version None)
Quarter: 2005Q4

REPORT INFORMATION
  Report Type: 
  Country: None (occurrence: None)
  Receive Date: 20051207
  Receipt Date: 20051117
  Transmission Date: 20060501
  Serious: Yes (Other)
  Sender: FDA-Public Use
  Company Number: PHEH2005US12722

PATIENT
  Age: 28 Year
  Sex: Female
  Weight: 49.886 kg

DRUGS (1)
  1. LAMISIL [Suspect]
     Indication: NAIL TINEA
     Dosage: 250 MG, QD
     Route: 048
     Dates: start: 20050802

REACTIONS (2)
  - CHEST DISCOMFORT [None]
  - CHEST PAIN [None]
